FAERS Safety Report 14011111 (Version 4)
Quarter: 2018Q3

REPORT INFORMATION
  Report Type: Spontaneous
  Country: US (occurrence: US)
  Receive Date: 20170926
  Receipt Date: 20180720
  Transmission Date: 20181010
  Serious: Yes (Other)
  Sender: FDA-Public Use
  Company Number: US-PFIZER INC-2017415567

PATIENT
  Age: 73 Year
  Sex: Female

DRUGS (1)
  1. SUTENT [Suspect]
     Active Substance: SUNITINIB MALATE
     Dosage: 37.5 MG, CYCLIC (TAKE 3 CAPSULES BY MOUTH DAILY FOR 28 DAYS FOLLOWED BY 14 DAYS OFF)
     Route: 048
     Dates: start: 201709

REACTIONS (4)
  - Blister [Unknown]
  - Hypertension [Unknown]
  - Stomatitis [Unknown]
  - Oral pain [Unknown]
